FAERS Safety Report 18108920 (Version 1)
Quarter: 2020Q3

REPORT INFORMATION
  Report Type: Spontaneous
  Country: US (occurrence: US)
  Receive Date: 20200804
  Receipt Date: 20200804
  Transmission Date: 20201103
  Serious: No
  Sender: FDA-Public Use
  Company Number: US-PFIZER INC-2020291634

PATIENT
  Age: 68 Year
  Sex: Female

DRUGS (1)
  1. IBRANCE [Suspect]
     Active Substance: PALBOCICLIB
     Indication: BREAST CANCER
     Dosage: 125 MG, CYCLIC (EVERY DAY ON DAYS 1?21 FOLLOWED BY 7 DAYS OFF TO COMPLETE A 28 DAYS CYCLE)
     Route: 048
     Dates: start: 20200610

REACTIONS (2)
  - White blood cell count decreased [Unknown]
  - Stomatitis [Unknown]
